FAERS Safety Report 16784942 (Version 1)
Quarter: 2019Q3

REPORT INFORMATION
  Report Type: Other
  Country: ES (occurrence: ES)
  Receive Date: 20190909
  Receipt Date: 20190909
  Transmission Date: 20191005
  Serious: Yes (Life-Threatening, Hospitalization, Other)
  Sender: FDA-Public Use
  Company Number: ES-ATLAS PHARMACEUTICALS, LLC-2074179

PATIENT
  Age: 52 Year
  Sex: Male

DRUGS (2)
  1. EMPAGLIFLOZIN [Suspect]
     Active Substance: EMPAGLIFLOZIN
     Route: 065
  2. METFORMIN [Suspect]
     Active Substance: METFORMIN HYDROCHLORIDE
     Indication: TYPE 2 DIABETES MELLITUS
     Route: 065

REACTIONS (4)
  - Neutrophilia [Recovered/Resolved]
  - Acute kidney injury [Recovered/Resolved]
  - Diabetic ketoacidosis [Recovered/Resolved]
  - Leukocytosis [Recovered/Resolved]
